FAERS Safety Report 13436038 (Version 1)
Quarter: 2017Q2

REPORT INFORMATION
  Report Type: Spontaneous
  Country: US (occurrence: US)
  Receive Date: 20170412
  Receipt Date: 20170412
  Transmission Date: 20170830
  Serious: Yes (Hospitalization)
  Sender: FDA-Public Use
  Company Number: None

PATIENT
  Age: 47 Year
  Sex: Female

DRUGS (1)
  1. CAPECITABINE 500 [Suspect]
     Active Substance: CAPECITABINE
     Indication: MALIGNANT ANORECTAL NEOPLASM
     Dosage: 500MG BID X 14D PO
     Route: 048
     Dates: start: 20160927, end: 20170303

REACTIONS (1)
  - Hepatic failure [None]

NARRATIVE: CASE EVENT DATE: 20170318
